FAERS Safety Report 6406071-5 (Version None)
Quarter: 2009Q4

REPORT INFORMATION
  Report Type: 
  Country: None (occurrence: None)
  Receive Date: 20091019
  Receipt Date: 20091009
  Transmission Date: 20100525
  Serious: Yes (Other)
  Sender: FDA-Public Use
  Company Number: CA-ELI_LILLY_AND_COMPANY-CA200910002721

PATIENT
  Age: 64 Year
  Sex: Female

DRUGS (9)
  1. FORTEO [Suspect]
     Indication: OSTEOPOROSIS
     Dosage: 20 UG, DAILY (1/D)
     Dates: start: 20090406
  2. CALCIUM                                 /N/A/ [Concomitant]
  3. SYNTHROID [Concomitant]
  4. ASAPHEN [Concomitant]
  5. ALAPRIL [Concomitant]
  6. CRESTOR /01588602/ [Concomitant]
  7. HUMALOG [Concomitant]
  8. LANTUS [Concomitant]
  9. CELEBREX [Concomitant]
     Dosage: UNK, AS NEEDED

REACTIONS (1)
  - DIABETIC COMA [None]
